FAERS Safety Report 4562802-0 (Version None)
Quarter: 2005Q1

REPORT INFORMATION
  Report Type: 
  Country: None (occurrence: None)
  Receive Date: 20050124
  Receipt Date: 20050111
  Transmission Date: 20050727
  Serious: Yes (Hospitalization)
  Sender: FDA-Public Use
  Company Number: 210855

PATIENT
  Age: 52 Year
  Sex: Male
  Weight: 77 kg

DRUGS (5)
  1. RITUXIMAB (RITUXIMAB) CONC FOR SOLUTION FOR INFUSION [Suspect]
     Indication: CHRONIC LYMPHOCYTIC LEUKAEMIA
     Dosage: 500 MG/M2 Q28D INTRAVENOUS
     Route: 042
     Dates: start: 20041123, end: 20041123
  2. FLUDARABINE PHOSPHATE [Suspect]
     Indication: CHRONIC LYMPHOCYTIC LEUKAEMIA
     Dosage: 25MG/M2Q28D INTRAVENOUS
     Route: 042
     Dates: start: 20041123, end: 20041125
  3. CYCLOPHOSPHAMIDE [Suspect]
     Indication: CHRONIC LYMPHOCYTIC LEUKAEMIA
     Dosage: 250 MG /M2 Q28D INTRAVENOUS
     Route: 042
     Dates: start: 20041123, end: 20041125
  4. CO-TRIMOXAZOLE (TRIMETHOPRIM, SULFAMETHOXAZOLE) [Suspect]
     Dosage: 960 MG
     Dates: start: 20041026, end: 20041130
  5. GLIPIZIDE [Concomitant]

REACTIONS (4)
  - BLOOD GLUCOSE INCREASED [None]
  - GALLBLADDER DISORDER [None]
  - HEPATITIS ACUTE [None]
  - ULTRASOUND ABDOMEN ABNORMAL [None]
